FAERS Safety Report 7074416-1 (Version None)
Quarter: 2010Q4

REPORT INFORMATION
  Report Type: 
  Country: None (occurrence: None)
  Receive Date: 20101029
  Receipt Date: 20101022
  Transmission Date: 20110411
  Serious: Yes (Hospitalization)
  Sender: FDA-Public Use
  Company Number: GXKR2010IT12065

PATIENT
  Sex: Male

DRUGS (2)
  1. FUROSEMIDE (NGX) [Suspect]
     Dosage: UNK
     Route: 065
  2. LOSARTAN POTASSIUM AND HYDROCHLOROTHIAZIDE [Suspect]
     Dosage: UNK
     Route: 065

REACTIONS (1)
  - ERYTHRODERMIC PSORIASIS [None]
